FAERS Safety Report 7350766-6 (Version None)
Quarter: 2011Q1

REPORT INFORMATION
  Report Type: 
  Country: None (occurrence: None)
  Receive Date: 20110222
  Receipt Date: 20101209
  Transmission Date: 20110831
  Serious: No
  Sender: FDA-Public Use
  Company Number: 020785

PATIENT
  Sex: Female
  Weight: 120.2 kg

DRUGS (14)
  1. KEPPRA [Suspect]
     Indication: CONVULSION
     Dosage: (2000 MG BID ORAL)
     Route: 048
  2. LORTAB [Concomitant]
  3. AGGRENOX [Concomitant]
  4. LACOSAMIDE [Suspect]
  5. TRILEPTAL [Concomitant]
  6. NAPROXEN [Concomitant]
  7. VITAMIN B1 TAB [Concomitant]
  8. MULTI-VITAMINS [Concomitant]
  9. CRESTOR [Concomitant]
  10. NEXIUM [Concomitant]
  11. GALENIC /CALCIUM/VITAMIN D/ [Concomitant]
  12. LACOSAMIDE [Suspect]
     Indication: CONVULSION
     Dosage: SEE IMAGE
     Route: 048
     Dates: start: 20090801, end: 20100701
  13. LACOSAMIDE [Suspect]
     Indication: CONVULSION
     Dosage: SEE IMAGE
     Route: 048
     Dates: start: 20100801
  14. CORTISONE [Concomitant]

REACTIONS (3)
  - DIZZINESS [None]
  - MUSCULOSKELETAL CHEST PAIN [None]
  - ABDOMINAL PAIN [None]
